FAERS Safety Report 24369000 (Version 1)
Quarter: 2024Q3

REPORT INFORMATION
  Report Type: Spontaneous
  Country: GB (occurrence: GB)
  Receive Date: 20240927
  Receipt Date: 20240927
  Transmission Date: 20241016
  Serious: Yes (Life-Threatening, Hospitalization)
  Sender: NOVO NORDISK
  Company Number: GB-NOVOPROD-1151498

PATIENT
  Age: 45 Year
  Sex: Female

DRUGS (1)
  1. OZEMPIC [Suspect]
     Active Substance: SEMAGLUTIDE
     Indication: Weight control
     Dosage: UNK

REACTIONS (6)
  - Diabetic coma [Unknown]
  - Seizure [Unknown]
  - Device malfunction [Unknown]
  - Drug delivery system issue [Unknown]
  - Suspected counterfeit product [Unknown]
  - Off label use [Unknown]
